FAERS Safety Report 10067895 (Version 2)
Quarter: 2014Q2

REPORT INFORMATION
  Report Type: Report from Study
  Country: KR (occurrence: KR)
  Receive Date: 20140409
  Receipt Date: 20140623
  Transmission Date: 20141212
  Serious: Yes (Death)
  Sender: FDA-Public Use
  Company Number: KR-BAYER-2014-048409

PATIENT
  Age: 79 Year
  Sex: Male
  Weight: 75 kg

DRUGS (8)
  1. ASPIRIN PROTECT [Suspect]
     Dosage: 100 MG, UNK(DID)
     Dates: start: 20110914, end: 20110919
  2. CLOPIDOGREL [Concomitant]
     Indication: THROMBOSIS PROPHYLAXIS
     Dosage: 75 MG, UNK
     Route: 048
     Dates: start: 20110915
  3. CLOPIDOGREL [Concomitant]
     Indication: ANTIPLATELET THERAPY
  4. FUROSEMIDE [Concomitant]
     Indication: DIURETIC THERAPY
     Dosage: 20MG/2ML/A
     Route: 042
     Dates: start: 20110915, end: 20110922
  5. CIPROFLOXACIN [Concomitant]
     Indication: ANTIBIOTIC PROPHYLAXIS
     Dosage: 20%/100ML, UNK
     Route: 042
     Dates: start: 20110922, end: 20111004
  6. ALBUMIN HUMAN [Concomitant]
     Indication: PROPHYLAXIS
     Dosage: UNK
     Route: 042
     Dates: start: 20110923, end: 20111004
  7. PANTOPRAZOLE [Concomitant]
     Indication: PEPTIC ULCER
     Dosage: 40 MG, BID
     Route: 042
     Dates: start: 20110920, end: 20111004
  8. PIPERACILLIN SODIUM W/TAZOBACTAM SODIUM [Concomitant]
     Dosage: UNK UNK, TID
     Route: 042

REACTIONS (2)
  - Septic shock [Fatal]
  - Pneumonia [Fatal]
